FAERS Safety Report 4713774-7 (Version None)
Quarter: 2005Q3

REPORT INFORMATION
  Report Type: 
  Country: None (occurrence: None)
  Receive Date: 20050712
  Receipt Date: 20050627
  Transmission Date: 20060218
  Serious: Yes (Hospitalization)
  Sender: FDA-Public Use
  Company Number: 200505418

PATIENT
  Age: 87 Year
  Sex: Female

DRUGS (8)
  1. ALPHAGAN P [Suspect]
     Indication: GLAUCOMA
     Dosage: 1 DROP BID EYE
     Dates: start: 20050101
  2. BENICAR HYDROCHLOROTHIAZIDE [Concomitant]
  3. THIAZIDE [Concomitant]
  4. XALATAN [Concomitant]
  5. COSOPT [Concomitant]
  6. PRED FORTE [Concomitant]
  7. ACYCLOVIR [Concomitant]
  8. METOPROLOL [Concomitant]

REACTIONS (4)
  - DIZZINESS [None]
  - HEART RATE IRREGULAR [None]
  - HYPOTENSION [None]
  - LOSS OF CONSCIOUSNESS [None]
